FAERS Safety Report 9762724 (Version 2)
Quarter: 2014Q1

REPORT INFORMATION
  Report Type: Report from Study
  Country: US (occurrence: US)
  Receive Date: 20131216
  Receipt Date: 20140116
  Transmission Date: 20141002
  Serious: Yes (Other)
  Sender: FDA-Public Use
  Company Number: PHEH2013US025561

PATIENT
  Sex: Male

DRUGS (1)
  1. EXJADE [Suspect]
     Indication: IRON OVERLOAD
     Dosage: 500 MG, QD
     Route: 048

REACTIONS (16)
  - Erectile dysfunction [Unknown]
  - Hepatic steatosis [Unknown]
  - Fatigue [Unknown]
  - Hiatus hernia [Unknown]
  - Haemochromatosis [Unknown]
  - Serum ferritin increased [Unknown]
  - Vitamin D decreased [Unknown]
  - Haemoglobin increased [Unknown]
  - Gene mutation [Unknown]
  - Hypoacusis [Unknown]
  - Tooth disorder [Unknown]
  - Hypoaesthesia [Unknown]
  - Muscle spasms [Unknown]
  - Constipation [Unknown]
  - Liver function test abnormal [Unknown]
  - Transaminases increased [Unknown]
